FAERS Safety Report 26115564 (Version 1)
Quarter: 2025Q4

REPORT INFORMATION
  Report Type: Report from Study
  Country: EU (occurrence: EU)
  Receive Date: 20251203
  Receipt Date: 20251203
  Transmission Date: 20260117
  Serious: Yes (Hospitalization)
  Sender: ABBVIE
  Company Number: EU-ABBVIE-6544293

PATIENT
  Age: 70 Year
  Sex: Female

DRUGS (2)
  1. FOSCARBIDOPA\FOSLEVODOPA [Suspect]
     Active Substance: FOSCARBIDOPA\FOSLEVODOPA
     Indication: Parkinson^s disease
     Dosage: KRN: 0.19 ML/H, KR: 0.22 ML/H, CRH: 0.26 ML/H, ED: 0.15 ML.
     Route: 058
     Dates: start: 20240902
  2. FOSCARBIDOPA\FOSLEVODOPA [Suspect]
     Active Substance: FOSCARBIDOPA\FOSLEVODOPA
     Dosage: CRN: 0.18 ML/H, CR: 0.19 ML/H, CRH: 0.20 ML/H, ED: 0.10 ML.
     Route: 058

REACTIONS (3)
  - Femoral neck fracture [Not Recovered/Not Resolved]
  - Dementia [Not Recovered/Not Resolved]
  - Unintentional medical device removal [Unknown]

NARRATIVE: CASE EVENT DATE: 20250101
